FAERS Safety Report 4509592-5 (Version None)
Quarter: 2004Q4

REPORT INFORMATION
  Report Type: 
  Country: None (occurrence: None)
  Receive Date: 20041119
  Receipt Date: 20041101
  Transmission Date: 20050328
  Serious: Yes (Hospitalization)
  Sender: FDA-Public Use
  Company Number: US_0411107719

PATIENT
  Sex: Female

DRUGS (2)
  1. PROZAC [Suspect]
  2. PAMELOR [Concomitant]

REACTIONS (9)
  - AGITATION [None]
  - ANXIETY [None]
  - DYSGEUSIA [None]
  - HEART RATE INCREASED [None]
  - HYPERHIDROSIS [None]
  - NAUSEA [None]
  - PANIC REACTION [None]
  - PARAESTHESIA [None]
  - STOMACH DISCOMFORT [None]
